FAERS Safety Report 25077803 (Version 1)
Quarter: 2025Q1

REPORT INFORMATION
  Report Type: Spontaneous
  Country: GB (occurrence: GB)
  Receive Date: 20250314
  Receipt Date: 20250314
  Transmission Date: 20250409
  Serious: Yes (Hospitalization, Disabling)
  Sender: CELLTRION
  Company Number: GB-CELLTRION INC.-2025GB007779

PATIENT

DRUGS (1)
  1. YUFLYMA [Suspect]
     Active Substance: ADALIMUMAB-AATY
     Indication: Psoriatic arthropathy
     Route: 058
     Dates: start: 202406

REACTIONS (3)
  - Spinal column injury [Unknown]
  - Fall [Unknown]
  - Therapy interrupted [Unknown]
